FAERS Safety Report 9203605 (Version 1)
Quarter: 2013Q2

REPORT INFORMATION
  Report Type: Report from Study
  Country: JP (occurrence: JP)
  Receive Date: 20130402
  Receipt Date: 20130402
  Transmission Date: 20140414
  Serious: Yes (Disabling)
  Sender: FDA-Public Use
  Company Number: JP-SANOFI-AVENTIS-2013SA032664

PATIENT
  Age: 74 Year
  Sex: Male
  Weight: 51 kg

DRUGS (14)
  1. LASIX [Suspect]
     Indication: CARDIAC FAILURE
     Route: 048
     Dates: start: 20121228
  2. EPLERENONE [Suspect]
     Indication: CARDIAC DISORDER
     Dates: start: 20110712
  3. ARTIST [Concomitant]
     Dates: start: 20110413
  4. AMIODARONE HYDROCHLORIDE [Concomitant]
     Dates: start: 20111222
  5. LIPITOR [Concomitant]
     Dates: start: 20110413
  6. PLAVIX [Concomitant]
     Dates: start: 20120214
  7. BAYASPIRIN [Concomitant]
     Dates: start: 20110413
  8. PARIET [Concomitant]
     Dates: start: 20110413
  9. NITRODERM [Concomitant]
     Dates: start: 20120311
  10. MAG-LAX [Concomitant]
     Dates: start: 20120126
  11. AMARYL [Concomitant]
     Dates: start: 20130202
  12. NESINA [Concomitant]
     Dates: start: 20121229
  13. DABIGATRAN ETEXILATE [Concomitant]
     Dates: start: 20120412
  14. CALCIUM POLYSTYRENE SULFONATE [Concomitant]
     Dates: start: 20130201

REACTIONS (1)
  - Cerebral infarction [Not Recovered/Not Resolved]
